FAERS Safety Report 10078004 (Version 2)
Quarter: 2014Q2

REPORT INFORMATION
  Report Type: Spontaneous
  Country: US (occurrence: US)
  Receive Date: 20140415
  Receipt Date: 20140521
  Transmission Date: 20141212
  Serious: Yes (Hospitalization)
  Sender: FDA-Public Use
  Company Number: US-BIOGENIDEC-2014BI033751

PATIENT
  Age: 59 Year
  Sex: Female

DRUGS (1)
  1. AVONEX [Suspect]
     Indication: MULTIPLE SCLEROSIS
     Route: 030

REACTIONS (5)
  - Bone operation [Recovered/Resolved]
  - Coronary arterial stent insertion [Recovered/Resolved]
  - Sinus operation [Recovered/Resolved]
  - Knee operation [Recovered/Resolved]
  - Osteoarthritis [Not Recovered/Not Resolved]
